FAERS Safety Report 6946875-3 (Version None)
Quarter: 2010Q3

REPORT INFORMATION
  Report Type: 
  Country: None (occurrence: None)
  Receive Date: 20100825
  Receipt Date: 20100809
  Transmission Date: 20110219
  Serious: Yes (Hospitalization, Other)
  Sender: FDA-Public Use
  Company Number: 2010AP001615

PATIENT
  Age: 2 Year
  Sex: Male

DRUGS (2)
  1. LAMOTRIGINE [Suspect]
     Dosage: 3 TAB; PO, 3 TAB; TAB; PO
     Route: 048
  2. MULTIVITAMINS PLUS IRON (MULTIVITAMINS PLUS IRON) [Suspect]
     Dosage: 3 TAB; PO, 3 TAB; TAB; PO
     Route: 048

REACTIONS (15)
  - ACCIDENTAL DRUG INTAKE BY CHILD [None]
  - ATAXIA [None]
  - BLOOD LACTIC ACID INCREASED [None]
  - BODY TEMPERATURE DECREASED [None]
  - CLUMSINESS [None]
  - CONVULSION [None]
  - DRUG TOXICITY [None]
  - HEART RATE INCREASED [None]
  - HYPERREFLEXIA [None]
  - IRRITABILITY [None]
  - MUSCLE TWITCHING [None]
  - NYSTAGMUS [None]
  - OVERDOSE [None]
  - SOMNOLENCE [None]
  - VOMITING [None]
